FAERS Safety Report 9114900 (Version 1)
Quarter: 2013Q1

REPORT INFORMATION
  Report Type: Spontaneous
  Country: US (occurrence: None)
  Receive Date: 20130220
  Receipt Date: 20130220
  Transmission Date: 20140127
  Serious: No
  Sender: FDA-Public Use
  Company Number: None

PATIENT
  Age: 59 Year
  Sex: Female
  Weight: 108.86 kg

DRUGS (3)
  1. QSYMIA [Suspect]
     Indication: WEIGHT DECREASED
     Dosage: ONE CAPSULE,ONCE PER DAY
     Route: 048
     Dates: start: 20130107, end: 20130120
  2. QSYMIA [Suspect]
     Indication: WEIGHT DECREASED
     Dosage: ONE CAPSULE,ONCE PER DAY
     Route: 048
     Dates: start: 20130121, end: 20130126
  3. QSYMIA [Concomitant]

REACTIONS (5)
  - Paraesthesia [None]
  - Irritability [None]
  - Chest pain [None]
  - Heart rate increased [None]
  - Feeling abnormal [None]
